FAERS Safety Report 7179049-4 (Version None)
Quarter: 2010Q4

REPORT INFORMATION
  Report Type: 
  Country: None (occurrence: None)
  Receive Date: 20101221
  Receipt Date: 20101217
  Transmission Date: 20110411
  Serious: Yes (Death)
  Sender: FDA-Public Use
  Company Number: PHHY2010US86293

PATIENT
  Sex: Male
  Weight: 40 kg

DRUGS (1)
  1. EXJADE [Suspect]
     Dosage: 1750 MG, QD
     Route: 048
     Dates: start: 20100401, end: 20100701

REACTIONS (1)
  - DEATH [None]
